FAERS Safety Report 6766053-0 (Version None)
Quarter: 2010Q2

REPORT INFORMATION
  Report Type: 
  Country: None (occurrence: None)
  Receive Date: 20100611
  Receipt Date: 20100603
  Transmission Date: 20101027
  Serious: Yes (Other)
  Sender: FDA-Public Use
  Company Number: B0530995A

PATIENT
  Age: 79 Year
  Sex: Male

DRUGS (17)
  1. CEFUROXIME [Suspect]
     Indication: CATARACT OPERATION
     Dosage: 250MG PER DAY
     Route: 031
     Dates: start: 20080319, end: 20080319
  2. ADRENALINE [Suspect]
     Indication: CATARACT OPERATION
     Route: 031
     Dates: start: 20080319, end: 20080319
  3. SODIUM HYALURONATE [Suspect]
     Indication: CATARACT OPERATION
     Route: 031
     Dates: start: 20080319, end: 20080319
  4. PHENYLEPHRINE [Suspect]
     Indication: CATARACT OPERATION
     Route: 031
     Dates: start: 20080319, end: 20080319
  5. CYCLOPENTOLATE HCL [Concomitant]
     Indication: CYCLOPLEGIA
     Route: 047
     Dates: start: 20080319, end: 20080319
  6. VOLTAREN [Concomitant]
     Route: 047
     Dates: start: 20080319, end: 20080319
  7. LIDOCAINE [Concomitant]
     Dosage: 2PCT PER DAY
     Dates: start: 20080319, end: 20080319
  8. HYALASE [Concomitant]
     Dates: start: 20080319, end: 20080319
  9. POVIDONE IODINE [Concomitant]
     Route: 061
     Dates: start: 20080319, end: 20080319
  10. DIAMOX SRC [Concomitant]
     Dosage: 250MG PER DAY
     Dates: start: 20080319, end: 20080319
  11. NEOMYCINE POLYMYXINE B DEXAMETHASONE [Concomitant]
     Dosage: 3IUAX PER DAY
     Route: 047
     Dates: start: 20080319
  12. ASPIRIN [Concomitant]
     Route: 048
  13. ATENOLOL [Concomitant]
     Route: 048
  14. SIMVASTATIN [Concomitant]
     Route: 048
  15. GLICLAZIDE [Concomitant]
     Route: 048
  16. RAMIPRIL [Concomitant]
     Route: 048
  17. METFORMIN [Concomitant]
     Route: 048

REACTIONS (4)
  - BLINDNESS [None]
  - RETINAL INJURY [None]
  - RETINOGRAM ABNORMAL [None]
  - VISUAL ACUITY REDUCED [None]
